FAERS Safety Report 5443881-5 (Version None)
Quarter: 2007Q3

REPORT INFORMATION
  Report Type: 
  Country: None (occurrence: None)
  Receive Date: 20070905
  Receipt Date: 20070823
  Transmission Date: 20080115
  Serious: No
  Sender: FDA-Public Use
  Company Number: US-BOEHRINGER INGELHEIM PHARMACEUTICALS, INC.-2007-BP-19793BP

PATIENT
  Age: 67 Year
  Sex: Female

DRUGS (3)
  1. MIRAPEX [Suspect]
     Indication: PARKINSON'S DISEASE
     Route: 048
     Dates: start: 20040101
  2. LEVOTHYROXINE SODIUM [Concomitant]
  3. LIPITOR [Concomitant]

REACTIONS (1)
  - DIZZINESS [None]
